FAERS Safety Report 24405556 (Version 1)
Quarter: 2024Q4

REPORT INFORMATION
  Report Type: Spontaneous
  Country: HR (occurrence: HR)
  Receive Date: 20241007
  Receipt Date: 20241007
  Transmission Date: 20250115
  Serious: Yes (Other)
  Sender: ALEXION PHARMACEUTICALS
  Company Number: None

PATIENT
  Age: 82 Year
  Weight: 50 kg

DRUGS (1)
  1. CALQUENCE [Suspect]
     Active Substance: ACALABRUTINIB
     Dosage: JA?INA LIJEKA100 MG DOZIRANJE 2 X100 MG

REACTIONS (3)
  - Rash [Unknown]
  - Peripheral swelling [Unknown]
  - Erythema [Unknown]
